FAERS Safety Report 7623141-4 (Version None)
Quarter: 2011Q3

REPORT INFORMATION
  Report Type: 
  Country: None (occurrence: None)
  Receive Date: 20110720
  Receipt Date: 20110705
  Transmission Date: 20111222
  Serious: Yes (Other)
  Sender: FDA-Public Use
  Company Number: PHHY2011US59035

PATIENT
  Sex: Female

DRUGS (10)
  1. DIOVAN [Suspect]
     Dosage: 160 MG, UNK
  2. VITAMIN D [Concomitant]
     Dosage: 2000 IU, UNK
  3. PROVACAL GENERIC FORM [Concomitant]
  4. DILACOR XR [Suspect]
     Dosage: 240 MG, QD
  5. FOLIC ACID [Concomitant]
     Dosage: UNK UKN, UNK
  6. DILTIAZEM [Suspect]
     Dosage: 240 MG, QD
  7. DOCLAR [Suspect]
  8. ASPIRIN [Concomitant]
     Dosage: UNK UKN, UNK
  9. CALCIUM CARBONATE [Concomitant]
     Dosage: 2000 MG, UNK
  10. DIOVAN [Suspect]
     Dosage: 320 MG, QD
     Dates: start: 20110520

REACTIONS (7)
  - DIABETES MELLITUS [None]
  - FATIGUE [None]
  - BLOOD PRESSURE DIASTOLIC DECREASED [None]
  - CELLULITIS [None]
  - BLOOD PRESSURE SYSTOLIC DECREASED [None]
  - OEDEMA PERIPHERAL [None]
  - CONDITION AGGRAVATED [None]
